FAERS Safety Report 4445031-0 (Version None)
Quarter: 2004Q3

REPORT INFORMATION
  Report Type: 
  Country: None (occurrence: None)
  Receive Date: 20040907
  Receipt Date: 20040824
  Transmission Date: 20050211
  Serious: Yes (Death)
  Sender: FDA-Public Use
  Company Number: 2004221931GB

PATIENT
  Age: 76 Year
  Sex: Male
  Weight: 65 kg

DRUGS (7)
  1. CELEBREX [Suspect]
     Indication: BONE PAIN
     Dosage: 100 MG, BID, ORAL
     Route: 048
     Dates: start: 20000414
  2. ZOMETA [Suspect]
     Indication: BONE PAIN
     Dosage: 4 MG, SINGLE, IV
     Route: 042
     Dates: start: 20040524, end: 20040524
  3. WARFARIN SODIUM [Concomitant]
  4. RANITIDINE [Concomitant]
  5. FLUVASTATIN (FLUVASTATIN) [Concomitant]
  6. RAMIPRIL [Concomitant]
  7. THYROXIN (LEVOTHYROXINE SODIUM) [Concomitant]

REACTIONS (1)
  - CEREBRAL HAEMORRHAGE [None]
